FAERS Safety Report 9667004 (Version 3)
Quarter: 2013Q4

REPORT INFORMATION
  Report Type: Spontaneous
  Country: DE (occurrence: DE)
  Receive Date: 20131104
  Receipt Date: 20131204
  Transmission Date: 20140711
  Serious: Yes (Hospitalization)
  Sender: FDA-Public Use
  Company Number: DE-UCBSA-102020

PATIENT
  Age: 10 Year
  Sex: Male
  Weight: 34.6 kg

DRUGS (2)
  1. EQUASYM RETARD [Suspect]
     Indication: ATTENTION DEFICIT/HYPERACTIVITY DISORDER
     Dosage: DOSE: 30 MG
     Route: 048
     Dates: start: 20110413, end: 20131009
  2. NO CONCOMITANT MEDICATION [Concomitant]

REACTIONS (1)
  - Petechiae [Recovered/Resolved]
